FAERS Safety Report 8913075 (Version 1)
Quarter: 2012Q4

REPORT INFORMATION
  Report Type: Spontaneous
  Country: GR (occurrence: None)
  Receive Date: 20121113
  Receipt Date: 20121113
  Transmission Date: 20130627
  Serious: Yes (Other)
  Sender: FDA-Public Use
  Company Number: GR-1194621

PATIENT
  Age: 59 Year
  Sex: Female
  Weight: 70 kg

DRUGS (3)
  1. VIGAMOX [Suspect]
     Indication: POSTOPERATIVE CARE
     Dosage: os
     Route: 047
     Dates: start: 20120918, end: 20121001
  2. AZARGA [Concomitant]
  3. GANFORT [Concomitant]

REACTIONS (3)
  - Hypopyon [None]
  - Eye infection staphylococcal [None]
  - Off label use [None]
